FAERS Safety Report 6792373-X (Version None)
Quarter: 2010Q2

REPORT INFORMATION
  Report Type: 
  Country: None (occurrence: None)
  Receive Date: 20100624
  Receipt Date: 20080729
  Transmission Date: 20101027
  Serious: No
  Sender: FDA-Public Use
  Company Number: US-PFIZER INC-2008063964

PATIENT
  Sex: Female
  Weight: 54.5 kg

DRUGS (1)
  1. DEPO-PROVERA SUSPENSION/INJ [Suspect]
     Indication: CONTRACEPTION
     Dates: start: 20080401, end: 20080401

REACTIONS (3)
  - AMENORRHOEA [None]
  - MENORRHAGIA [None]
  - METRORRHAGIA [None]
